FAERS Safety Report 8991132 (Version 1)
Quarter: 2012Q4

REPORT INFORMATION
  Report Type: Spontaneous
  Country: US (occurrence: None)
  Receive Date: 20121219
  Receipt Date: 20121219
  Transmission Date: 20130627
  Serious: Yes (Death, Other)
  Sender: FDA-Public Use
  Company Number: TPA2012A09781

PATIENT
  Age: 83 Year
  Sex: Female
  Weight: 79.38 kg

DRUGS (2)
  1. ACTOS (PIOGLITAZONE HYDROCHLORIDE) [Suspect]
     Dates: start: 20020814, end: 20120412
  2. METFORMIN (METFORMIN) [Concomitant]

REACTIONS (1)
  - Bladder cancer [None]
